FAERS Safety Report 5935503-1 (Version None)
Quarter: 2008Q4

REPORT INFORMATION
  Report Type: 
  Country: None (occurrence: None)
  Receive Date: 20081030
  Receipt Date: 20081006
  Transmission Date: 20090506
  Serious: No
  Sender: FDA-Public Use
  Company Number: US-BAYER-200814003BCC

PATIENT
  Age: 70 Year
  Sex: Male
  Weight: 90 kg

DRUGS (4)
  1. ALEVE (CAPLET) [Suspect]
     Indication: BURSITIS
     Route: 048
     Dates: start: 20080801, end: 20081001
  2. VIACTIV [Concomitant]
  3. VITAMIN D [Concomitant]
  4. BENICAR [Concomitant]

REACTIONS (1)
  - FLATULENCE [None]
